FAERS Safety Report 8499145 (Version 5)
Quarter: 2012Q4

REPORT INFORMATION
  Report Type: 
  Country: JP (occurrence: JP)
  Receive Date: 20120409
  Receipt Date: 20121119
  Transmission Date: 20130627
  Serious: Yes (Life-Threatening, Other)
  Sender: FDA-Public Use
  Company Number: PHHY2012JP028296

PATIENT
  Age: 40 Year
  Sex: Male
  Weight: 65 kg

DRUGS (15)
  1. CLOZARIL [Suspect]
     Indication: SCHIZOPHRENIA, PARANOID TYPE
     Dosage: 12.5 mg, UNK
     Route: 048
     Dates: start: 20120302, end: 20120302
  2. CLOZARIL [Suspect]
     Dosage: 25 mg, UNK
     Route: 048
     Dates: start: 20120303, end: 20120305
  3. CLOZARIL [Suspect]
     Dosage: 50 mg, UNK
     Route: 048
     Dates: start: 20120306, end: 20120308
  4. CLOZARIL [Suspect]
     Dosage: 75 mg, UNK
     Route: 048
     Dates: start: 20120309, end: 20120310
  5. CLOZARIL [Suspect]
     Dosage: 100 mg, UNK
     Route: 048
     Dates: start: 20120311, end: 20120312
  6. CLOZARIL [Suspect]
     Dosage: 125 mg, UNK
     Route: 048
     Dates: start: 20120313, end: 20120315
  7. CLOZARIL [Suspect]
     Dosage: 150 mg, UNK
     Route: 048
     Dates: start: 20120316, end: 20120318
  8. CLOZARIL [Suspect]
     Dosage: 175 mg, UNK
     Route: 048
     Dates: start: 20120319, end: 20120321
  9. CLOZARIL [Suspect]
     Dosage: 200 mg, UNK
     Route: 048
     Dates: start: 20120322, end: 20120322
  10. LIMAS [Concomitant]
     Indication: SCHIZOPHRENIA, PARANOID TYPE
     Dosage: 800 mg, UNK
     Route: 048
  11. TOPIRAMATE [Concomitant]
     Indication: SCHIZOPHRENIA, PARANOID TYPE
     Dosage: 300 mg, UNK
     Route: 048
  12. PYRETHIA [Concomitant]
     Indication: SCHIZOPHRENIA, PARANOID TYPE
     Dosage: 50 mg, UNK
     Route: 048
     Dates: start: 20111019
  13. PURSENNID [Concomitant]
     Indication: CONSTIPATION
     Dosage: 24 mg, UNK
     Route: 048
     Dates: start: 20111019
  14. HIRNAMIN [Concomitant]
     Dosage: 200 mg, UNK
     Route: 048
     Dates: start: 20120309, end: 20120322
  15. BLONANSERIN [Concomitant]
     Dosage: 24 mg, UNK
     Route: 048
     Dates: start: 20120301, end: 20120322

REACTIONS (9)
  - Dehydration [Recovered/Resolved]
  - Tubulointerstitial nephritis [Recovered/Resolved]
  - Eosinophil count increased [Recovered/Resolved]
  - White blood cell count increased [Recovered/Resolved]
  - Diarrhoea [Recovered/Resolved]
  - Blood creatinine increased [Recovered/Resolved]
  - Blood urea increased [Unknown]
  - Persecutory delusion [Unknown]
  - Hallucination, auditory [Unknown]
